FAERS Safety Report 7827546-8 (Version None)
Quarter: 2011Q4

REPORT INFORMATION
  Report Type: 
  Country: None (occurrence: None)
  Receive Date: 20111020
  Receipt Date: 20111013
  Transmission Date: 20120403
  Serious: Yes (Life-Threatening, Other)
  Sender: FDA-Public Use
  Company Number: PHHY2011CA90059

PATIENT
  Sex: Male

DRUGS (7)
  1. ALISKIREN [Suspect]
     Indication: HYPERTENSION
     Dosage: 150 MG,
     Route: 048
     Dates: start: 20100722
  2. HYTRACIN [Concomitant]
     Dates: start: 20110705
  3. MELOXICAM [Concomitant]
     Dates: start: 20110705
  4. CALCIUM CHANNEL BLOCKERS [Concomitant]
  5. METFORMIN HCL [Concomitant]
     Dates: start: 20110705
  6. BETA BLOCKING AGENTS [Concomitant]
  7. NORVASC [Concomitant]
     Dates: start: 20110705

REACTIONS (2)
  - RENAL CELL CARCINOMA [None]
  - DIABETES MELLITUS [None]
